FAERS Safety Report 4602516-1 (Version None)
Quarter: 2005Q1

REPORT INFORMATION
  Report Type: 
  Country: None (occurrence: None)
  Receive Date: 20050307
  Receipt Date: 20050225
  Transmission Date: 20050727
  Serious: Yes (Death, Hospitalization)
  Sender: FDA-Public Use
  Company Number: MEDI-0002937

PATIENT
  Age: 8 Month
  Sex: Female
  Weight: 5.4432 kg

DRUGS (7)
  1. SYNAGIS [Suspect]
     Indication: ANTIVIRAL PROPHYLAXIS
     Dosage: 95 MG, 1 IN 30 D, INTRAMUSCULAR - SEE IMAGE
     Route: 030
     Dates: start: 20041229, end: 20050223
  2. SYNAGIS [Suspect]
     Indication: ANTIVIRAL PROPHYLAXIS
     Dosage: 95 MG, 1 IN 30 D, INTRAMUSCULAR - SEE IMAGE
     Route: 030
     Dates: start: 20041229
  3. SYNAGIS [Suspect]
     Indication: ANTIVIRAL PROPHYLAXIS
     Dosage: 95 MG, 1 IN 30 D, INTRAMUSCULAR - SEE IMAGE
     Route: 030
     Dates: start: 20050128
  4. AMOXICILLIN [Concomitant]
  5. LASIX [Concomitant]
  6. PULMICORT [Concomitant]
  7. ENALAPRIL MALEATE [Concomitant]

REACTIONS (3)
  - DYSPNOEA [None]
  - IRRITABILITY [None]
  - RESPIRATORY ARREST [None]
